FAERS Safety Report 10033664 (Version 1)
Quarter: 2014Q1

REPORT INFORMATION
  Report Type: Spontaneous
  Country: US (occurrence: US)
  Receive Date: 20140325
  Receipt Date: 20140325
  Transmission Date: 20141002
  Serious: No
  Sender: FDA-Public Use
  Company Number: US-BIOGENIDEC-2014BI023634

PATIENT
  Age: 53 Year
  Sex: Female

DRUGS (6)
  1. TECFIDERA [Suspect]
     Indication: MULTIPLE SCLEROSIS
     Route: 048
     Dates: start: 20140226
  2. ALEVE [Concomitant]
  3. BACLOFEN [Concomitant]
  4. IRON [Concomitant]
  5. TYLENOL ALLERGY MULTI-SYMPTOM [Concomitant]
  6. DULCOLAX STOOL SOFTENER [Concomitant]

REACTIONS (3)
  - Constipation [Unknown]
  - Headache [Unknown]
  - Flushing [Unknown]
